FAERS Safety Report 17861822 (Version 1)
Quarter: 2020Q2

REPORT INFORMATION
  Report Type: Spontaneous
  Country: SA (occurrence: SA)
  Receive Date: 20200604
  Receipt Date: 20200604
  Transmission Date: 20200714
  Serious: Yes (Hospitalization, Other)
  Sender: FDA-Public Use
  Company Number: SA-APOTEX-2020AP011714

PATIENT
  Age: 37 Year
  Sex: Female

DRUGS (3)
  1. ESCITALOPRAM [Suspect]
     Active Substance: ESCITALOPRAM OXALATE
     Indication: DEPRESSION
     Dosage: 10 MG, QD
     Route: 048
  2. PAROXETINE. [Suspect]
     Active Substance: PAROXETINE
     Indication: DEPRESSION
     Dosage: 50 MG, QD
     Route: 048
  3. AMITRIPTYLINE [Concomitant]
     Active Substance: AMITRIPTYLINE
     Indication: DEPRESSION
     Dosage: UNK
     Route: 048

REACTIONS (19)
  - Lung infiltration [Recovering/Resolving]
  - Respiratory distress [Recovering/Resolving]
  - Lower respiratory tract infection [Recovering/Resolving]
  - Rales [Recovering/Resolving]
  - Fatigue [Recovering/Resolving]
  - Cough [Recovering/Resolving]
  - Cyanosis [Recovering/Resolving]
  - Condition aggravated [Recovering/Resolving]
  - Respiratory failure [Recovering/Resolving]
  - Sinus tachycardia [Recovering/Resolving]
  - Pyrexia [Recovering/Resolving]
  - Decreased appetite [Recovering/Resolving]
  - Granuloma [Recovering/Resolving]
  - Interstitial lung disease [Recovering/Resolving]
  - Oxygen saturation decreased [Recovering/Resolving]
  - General physical health deterioration [Recovering/Resolving]
  - Pulmonary sarcoidosis [Recovering/Resolving]
  - Hilar lymphadenopathy [Recovering/Resolving]
  - Dyspnoea [Recovering/Resolving]
